FAERS Safety Report 8277765-4 (Version None)
Quarter: 2012Q2

REPORT INFORMATION
  Report Type: 
  Country: None (occurrence: None)
  Receive Date: 20120412
  Receipt Date: 20120404
  Transmission Date: 20120825
  Serious: Yes (Hospitalization, Other)
  Sender: FDA-Public Use
  Company Number: US-JNJFOC-20120302090

PATIENT
  Sex: Male

DRUGS (17)
  1. XARELTO [Suspect]
     Indication: THROMBOSIS PROPHYLAXIS
     Route: 048
     Dates: start: 20120207
  2. FISH OIL [Concomitant]
     Route: 048
  3. FERROUS SULFATE TAB [Concomitant]
     Route: 048
  4. METFORMIN HCL [Concomitant]
     Route: 048
  5. MULTI-VITAMINS [Concomitant]
  6. NIFEREX (IRON POLYSACCHARIDE) [Concomitant]
     Route: 048
  7. NYSTATIN [Concomitant]
  8. OXYCODONE HCL [Concomitant]
     Indication: BREAKTHROUGH PAIN
     Route: 048
  9. XARELTO [Suspect]
     Indication: KNEE ARTHROPLASTY
     Route: 048
     Dates: start: 20120207
  10. LISINOPRIL [Concomitant]
  11. OXYCONTIN [Concomitant]
     Route: 048
  12. LUTEIN [Concomitant]
     Route: 048
  13. XENADERM [Concomitant]
  14. NYSTATIN SWISH AND SWALLOW [Concomitant]
  15. ASCORBIC ACID [Concomitant]
     Route: 048
  16. FLOMAX [Concomitant]
     Route: 048
  17. LASIX [Concomitant]
     Route: 048

REACTIONS (4)
  - GASTRIC ULCER [None]
  - HYPOVOLAEMIC SHOCK [None]
  - WOUND DEHISCENCE [None]
  - GASTRIC ULCER HAEMORRHAGE [None]
